FAERS Safety Report 9904589 (Version 2)
Quarter: 2014Q2

REPORT INFORMATION
  Report Type: Spontaneous
  Country: US (occurrence: US)
  Receive Date: 20140218
  Receipt Date: 20140617
  Transmission Date: 20141212
  Serious: No
  Sender: FDA-Public Use
  Company Number: US-B.I. PHARMACEUTICALS,INC./RIDGEFIELD-2014-BI-06824BP

PATIENT
  Age: 71 Year
  Sex: Female

DRUGS (1)
  1. COMBIVENT [Suspect]
     Indication: BRONCHITIS CHRONIC
     Dosage: DOSE PER APPLICATION: 20 MCG / 100 MCG; DAILY DOSE: 80 MCG / 400 MCG
     Route: 055
     Dates: start: 2013

REACTIONS (2)
  - Dyspnoea [Recovered/Resolved]
  - Product quality issue [Recovered/Resolved]
